FAERS Safety Report 4981767-0 (Version None)
Quarter: 2006Q2

REPORT INFORMATION
  Report Type: 
  Country: None (occurrence: None)
  Receive Date: 20060421
  Receipt Date: 20060410
  Transmission Date: 20061013
  Serious: Yes (Disabling)
  Sender: FDA-Public Use
  Company Number: HQWYE777111APR06

PATIENT
  Age: 46 Year
  Sex: Male
  Weight: 74.91 kg

DRUGS (7)
  1. EFFEXOR XR [Suspect]
     Indication: DEPRESSION
     Dosage: SEE IMAGE, ORAL
     Route: 048
     Dates: start: 20051202, end: 20060101
  2. EFFEXOR XR [Suspect]
     Indication: FATIGUE
     Dosage: SEE IMAGE, ORAL
     Route: 048
     Dates: start: 20051202, end: 20060101
  3. EFFEXOR XR [Suspect]
     Indication: DEPRESSION
     Dosage: SEE IMAGE, ORAL
     Route: 048
     Dates: start: 20060101, end: 20060310
  4. EFFEXOR XR [Suspect]
     Indication: FATIGUE
     Dosage: SEE IMAGE, ORAL
     Route: 048
     Dates: start: 20060101, end: 20060310
  5. SINGULAIR [Concomitant]
  6. FLONASE [Concomitant]
  7. NEXIUM [Concomitant]

REACTIONS (7)
  - ACTIVITIES OF DAILY LIVING IMPAIRED [None]
  - CONDITION AGGRAVATED [None]
  - FEELING ABNORMAL [None]
  - IMPAIRED WORK ABILITY [None]
  - MEMORY IMPAIRMENT [None]
  - MIGRAINE [None]
  - SOMNOLENCE [None]
